FAERS Safety Report 6239464-X (Version None)
Quarter: 2009Q2

REPORT INFORMATION
  Report Type: 
  Country: None (occurrence: None)
  Receive Date: 20090618
  Receipt Date: 20090618
  Transmission Date: 20091009
  Serious: No
  Sender: FDA-Public Use
  Company Number: None

PATIENT
  Age: 33 Year
  Sex: Female
  Weight: 48.5349 kg

DRUGS (1)
  1. ZICAM  NASAL SWAB [Suspect]
     Indication: NASOPHARYNGITIS
     Dosage: EVERY 4 HOURS NASAL
     Route: 045
     Dates: start: 20030303, end: 20090415

REACTIONS (2)
  - DRUG EXPOSURE DURING PREGNANCY [None]
  - HYPOSMIA [None]
